FAERS Safety Report 25545747 (Version 2)
Quarter: 2025Q3

REPORT INFORMATION
  Report Type: Spontaneous
  Country: GB (occurrence: GB)
  Receive Date: 20250712
  Receipt Date: 20250814
  Transmission Date: 20251020
  Serious: Yes (Death, Other)
  Sender: MERCK SHARP & DOHME LLC
  Company Number: None

PATIENT
  Sex: Female
  Weight: 59 kg

DRUGS (8)
  1. PEMBROLIZUMAB [Suspect]
     Active Substance: PEMBROLIZUMAB
     Indication: Breast cancer female
     Route: 042
     Dates: start: 20250403, end: 20250501
  2. FLUCONAZOLE [Concomitant]
     Active Substance: FLUCONAZOLE
     Dates: start: 20250508
  3. CARBOPLATIN [Concomitant]
     Active Substance: CARBOPLATIN
  4. PENICILLIN V [Concomitant]
     Active Substance: PENICILLIN V
     Dates: start: 20250506
  5. CODEINE [Concomitant]
     Active Substance: CODEINE
     Dates: start: 20250504
  6. PROPRANOLOL [Concomitant]
     Active Substance: PROPRANOLOL HYDROCHLORIDE
     Dates: start: 20240325
  7. PACLITAXEL [Concomitant]
     Active Substance: PACLITAXEL
  8. OMEPRAZOLE [Concomitant]
     Active Substance: OMEPRAZOLE
     Dates: start: 20240325

REACTIONS (3)
  - Myocarditis [Fatal]
  - Myositis [Not Recovered/Not Resolved]
  - Rash [Unknown]

NARRATIVE: CASE EVENT DATE: 20250501
